FAERS Safety Report 5762560-8 (Version None)
Quarter: 2008Q2

REPORT INFORMATION
  Report Type: 
  Country: None (occurrence: None)
  Receive Date: 20080609
  Receipt Date: 20080529
  Transmission Date: 20081010
  Serious: Yes (Hospitalization)
  Sender: FDA-Public Use
  Company Number: B0522844A

PATIENT
  Age: 83 Year
  Sex: Female

DRUGS (3)
  1. AUGMENTIN '125' [Suspect]
     Indication: ERYSIPELAS
     Route: 048
     Dates: start: 20080328, end: 20080405
  2. ROCEPHIN [Suspect]
     Indication: ERYSIPELAS
     Route: 042
     Dates: start: 20080321, end: 20080327
  3. LOVENOX [Concomitant]
     Indication: ERYSIPELAS
     Route: 058
     Dates: start: 20080321, end: 20080327

REACTIONS (6)
  - ERYTHEMA MULTIFORME [None]
  - PHOTOSENSITIVITY REACTION [None]
  - PRURITUS [None]
  - RASH MACULAR [None]
  - RASH PAPULAR [None]
  - TOXIC SKIN ERUPTION [None]
